FAERS Safety Report 10216419 (Version 2)
Quarter: 2014Q2

REPORT INFORMATION
  Report Type: Spontaneous
  Country: BG (occurrence: BG)
  Receive Date: 20140604
  Receipt Date: 20140604
  Transmission Date: 20141212
  Serious: Yes (Other)
  Sender: FDA-Public Use
  Company Number: BG-ASTRAZENECA-2013SE76309

PATIENT
  Age: 49 Year
  Sex: Female

DRUGS (3)
  1. FASLODEX [Suspect]
     Indication: BREAST CANCER METASTATIC
     Route: 030
     Dates: start: 20130218
  2. NOLVADEX [Suspect]
     Indication: BREAST CANCER METASTATIC
     Route: 048
     Dates: start: 201011, end: 201301
  3. BIPHOSPHONATES [Concomitant]

REACTIONS (2)
  - Metastases to skin [Unknown]
  - Metastases to bone [Unknown]
